FAERS Safety Report 4984598-0 (Version None)
Quarter: 2006Q2

REPORT INFORMATION
  Report Type: 
  Country: None (occurrence: None)
  Receive Date: 20060427
  Receipt Date: 20060417
  Transmission Date: 20061013
  Serious: Yes (Hospitalization, Other)
  Sender: FDA-Public Use
  Company Number: US-SANOFI-SYNTHELABO-A03200602520

PATIENT
  Age: 611 Month
  Sex: Female
  Weight: 56.2 kg

DRUGS (3)
  1. ELOXATIN [Suspect]
     Indication: COLON CANCER
     Route: 042
     Dates: start: 20060412, end: 20060412
  2. ALOXI [Concomitant]
     Route: 042
     Dates: start: 20060328
  3. DECADRON [Concomitant]
     Route: 042

REACTIONS (4)
  - BLOOD PRESSURE INCREASED [None]
  - HEART RATE INCREASED [None]
  - LARYNGOSPASM [None]
  - PANIC REACTION [None]
